FAERS Safety Report 9967736 (Version 1)
Quarter: 2014Q1

REPORT INFORMATION
  Report Type: Report from Study
  Country: BR (occurrence: BR)
  Receive Date: 20140306
  Receipt Date: 20140306
  Transmission Date: 20141002
  Serious: Yes (Hospitalization, Other)
  Sender: FDA-Public Use
  Company Number: PHHY2014BR026753

PATIENT
  Sex: Female
  Weight: 53 kg

DRUGS (8)
  1. FORASEQ [Suspect]
     Indication: BRONCHITIS
     Dosage: 1 DF, QD AT NIGHT
     Route: 055
     Dates: start: 2008
  2. CITALOPRAM [Concomitant]
     Indication: DEPRESSION
     Dosage: 20 MG, UNK
     Dates: start: 2008
  3. LOSARTAN [Concomitant]
     Indication: BLOOD PRESSURE
     Dosage: 50 MG, UNK
     Dates: start: 2010
  4. AMLODIPINE [Concomitant]
     Dosage: 5 MG, UNK
     Dates: start: 2012
  5. HYDROCHLOROTHIAZIDE [Concomitant]
     Indication: POLYURIA
     Dosage: 25 MG, UNK
     Dates: start: 2013
  6. FUROSEMIDE [Concomitant]
     Indication: POLYURIA
     Dosage: 40 MG, UNK
     Dates: start: 2010
  7. OLCADIL [Concomitant]
     Indication: SEDATION
     Dosage: 1 MG, UNK
     Dates: start: 2012
  8. SIMVASTATIN [Concomitant]
     Indication: BLOOD CHOLESTEROL
     Dosage: 20 MG, UNK
     Dates: start: 2012

REACTIONS (4)
  - Vulval cancer [Not Recovered/Not Resolved]
  - Bronchitis [Not Recovered/Not Resolved]
  - Cough [Not Recovered/Not Resolved]
  - Drug administration error [Unknown]
